FAERS Safety Report 9222183 (Version 2)
Quarter: 2013Q2

REPORT INFORMATION
  Report Type: Report from Study
  Country: CY (occurrence: CY)
  Receive Date: 20130410
  Receipt Date: 20130517
  Transmission Date: 20140414
  Serious: Yes (Other)
  Sender: FDA-Public Use
  Company Number: PHHY2013CY033291

PATIENT
  Age: 82 Year
  Sex: Male

DRUGS (10)
  1. ZOLEDRONATE [Suspect]
     Dosage: 4 MG, MONTHLY
     Route: 042
     Dates: start: 20110329, end: 20120702
  2. ZOLEDRONATE [Suspect]
     Dosage: 4 MG, MONTHLY
     Route: 042
     Dates: end: 20120720
  3. ZOLEDRONATE [Suspect]
     Dosage: 2 MG, MONTHLY
     Route: 042
     Dates: end: 20121019
  4. PARACETAMOL [Concomitant]
     Indication: BONE PAIN
     Dosage: 500 MG, QID
  5. METFORMIN [Concomitant]
     Indication: TYPE 2 DIABETES MELLITUS
  6. PROPRANOLOL [Concomitant]
     Indication: HYPERTENSION
  7. HYDROCHLOROTHIAZIDE [Concomitant]
     Indication: HYPERTENSION
  8. TELMISARTAN [Concomitant]
     Indication: HYPERTENSION
  9. ASPIRIN [Concomitant]
     Indication: HYPERTENSION
  10. GLIBENCLAMIDE [Concomitant]

REACTIONS (3)
  - Renal impairment [Not Recovered/Not Resolved]
  - Blood creatinine increased [Not Recovered/Not Resolved]
  - General physical health deterioration [Not Recovered/Not Resolved]
